FAERS Safety Report 10372650 (Version 1)
Quarter: 2014Q3

REPORT INFORMATION
  Report Type: Spontaneous
  Country: US (occurrence: US)
  Receive Date: 20140808
  Receipt Date: 20140808
  Transmission Date: 20150326
  Serious: No
  Sender: FDA-Public Use
  Company Number: US-BRISTOL-MYERS SQUIBB COMPANY-21133509

PATIENT
  Age: 61 Year
  Sex: Female

DRUGS (9)
  1. SPRYCEL [Suspect]
     Active Substance: DASATINIB
     Dosage: 1DF: 1TABLET?100MG
     Route: 048
  2. MOMETASONE [Concomitant]
     Active Substance: MOMETASONE
  3. AVAPRO [Concomitant]
     Active Substance: IRBESARTAN
  4. LEVOTHYROXINE SODIUM. [Concomitant]
     Active Substance: LEVOTHYROXINE SODIUM
  5. AMARYL [Concomitant]
     Active Substance: GLIMEPIRIDE
  6. CENTRUM [Concomitant]
     Active Substance: VITAMINS
  7. LIPITOR [Concomitant]
     Active Substance: ATORVASTATIN CALCIUM
  8. ACETYLSALICYLIC ACID [Concomitant]
     Active Substance: ASPIRIN
  9. SITAGLIPTIN PHOSPHATE + METFORMIN HCL [Concomitant]
     Active Substance: METFORMIN\SITAGLIPTIN

REACTIONS (2)
  - Rash [Unknown]
  - Pruritus [Unknown]
